FAERS Safety Report 8591559-1 (Version None)
Quarter: 2012Q3

REPORT INFORMATION
  Report Type: 
  Country: None (occurrence: None)
  Receive Date: 20120814
  Receipt Date: 20120807
  Transmission Date: 20120928
  Serious: No
  Sender: FDA-Public Use
  Company Number: US-PFIZER INC-2012193145

PATIENT

DRUGS (4)
  1. VESICARE [Suspect]
     Dosage: UNK
  2. DETROL [Suspect]
     Dosage: UNK
  3. ENABLEX [Suspect]
     Dosage: UNK
  4. DITROPAN [Suspect]
     Dosage: UNK

REACTIONS (1)
  - DRUG INEFFECTIVE [None]
